FAERS Safety Report 14669048 (Version 9)
Quarter: 2018Q4

REPORT INFORMATION
  Report Type: Report from Study
  Country: ES (occurrence: ES)
  Receive Date: 20180322
  Receipt Date: 20181008
  Transmission Date: 20190204
  Serious: Yes (Hospitalization)
  Sender: FDA-Public Use
  Company Number: ES-PFIZER INC-2018115684

PATIENT
  Age: 64 Year
  Sex: Male
  Weight: 62 kg

DRUGS (17)
  1. AFLIBERCEPT [Suspect]
     Active Substance: AFLIBERCEPT
     Dosage: 312 MG, CYCLIC
     Route: 041
     Dates: start: 20150521, end: 20150521
  2. LEUCOVORIN /00566701/ [Suspect]
     Active Substance: LEUCOVORIN
     Indication: COLORECTAL CANCER METASTATIC
     Dosage: 752 MG, CYCLIC
     Route: 041
     Dates: start: 20150702, end: 20150702
  3. 5-FU /00098801/ [Suspect]
     Active Substance: FLUOROURACIL
     Indication: COLORECTAL CANCER METASTATIC
     Dosage: 772 MG, CYCLIC
     Route: 040
     Dates: start: 20150326, end: 20150326
  4. AFLIBERCEPT [Suspect]
     Active Substance: AFLIBERCEPT
     Indication: COLORECTAL CANCER METASTATIC
     Dosage: 312 MG, CYCLIC
     Route: 041
     Dates: start: 20150326, end: 20150326
  5. MIDAZOLAM [Concomitant]
     Active Substance: MIDAZOLAM HYDROCHLORIDE
     Dosage: UNK
     Dates: start: 2015
  6. FENOFIBRATE. [Concomitant]
     Active Substance: FENOFIBRATE
     Indication: PROPHYLAXIS
     Dosage: UNK
     Dates: start: 2013
  7. IRINOTECAN HCL [Suspect]
     Active Substance: IRINOTECAN HYDROCHLORIDE
     Indication: COLORECTAL CANCER METASTATIC
     Dosage: 347.4 MG, CYCLIC
     Route: 041
     Dates: start: 20150326, end: 20150326
  8. IRINOTECAN HCL [Suspect]
     Active Substance: IRINOTECAN HYDROCHLORIDE
     Dosage: 243.6 MG, CYCLIC
     Route: 041
     Dates: start: 20150702, end: 20150702
  9. 5-FU /00098801/ [Suspect]
     Active Substance: FLUOROURACIL
     Dosage: 772 MG, CYCLIC
     Route: 040
     Dates: start: 20150521, end: 20150521
  10. 5-FU /00098801/ [Suspect]
     Active Substance: FLUOROURACIL
     Dosage: 541.4 MG, CYCLIC
     Route: 040
     Dates: start: 20150702, end: 20150702
  11. OMEPRAZOLE. [Concomitant]
     Active Substance: OMEPRAZOLE
     Indication: PROPHYLAXIS
     Dosage: UNK
     Dates: start: 2013
  12. IRINOTECAN HCL [Suspect]
     Active Substance: IRINOTECAN HYDROCHLORIDE
     Dosage: 374.4 MG, CYCLIC
     Route: 041
     Dates: start: 20150521, end: 20150521
  13. METFORMIN [Concomitant]
     Active Substance: METFORMIN HYDROCHLORIDE
     Indication: PROPHYLAXIS
     Dosage: UNK
     Dates: start: 1996
  14. 5-FU /00098801/ [Suspect]
     Active Substance: FLUOROURACIL
     Dosage: 4632 MG, CYCLIC
     Route: 041
     Dates: start: 20150326, end: 20150326
  15. 5-FU /00098801/ [Suspect]
     Active Substance: FLUOROURACIL
     Dosage: 4632 MG, CYCLIC
     Route: 041
     Dates: start: 20150521, end: 20150521
  16. 5-FU /00098801/ [Suspect]
     Active Substance: FLUOROURACIL
     Dosage: 3248 MG, CYCLIC
     Route: 041
     Dates: start: 20150702, end: 20150702
  17. AFLIBERCEPT [Suspect]
     Active Substance: AFLIBERCEPT
     Dosage: 296 MG, CYCLIC
     Route: 041
     Dates: start: 20150702, end: 20150702

REACTIONS (5)
  - Stomatitis [Recovered/Resolved]
  - Asthenia [Recovered/Resolved]
  - Stomatitis [Recovered/Resolved with Sequelae]
  - Odynophagia [Recovered/Resolved]
  - Stomatitis [Recovered/Resolved]

NARRATIVE: CASE EVENT DATE: 20150527
